FAERS Safety Report 25186918 (Version 1)
Quarter: 2025Q2

REPORT INFORMATION
  Report Type: Spontaneous
  Country: US (occurrence: US)
  Receive Date: 20250411
  Receipt Date: 20250411
  Transmission Date: 20250717
  Serious: No
  Sender: SANOFI AVENTIS
  Company Number: US-SA-2025SA102826

PATIENT
  Sex: Female
  Weight: 61.25 kg

DRUGS (6)
  1. DUPIXENT [Suspect]
     Active Substance: DUPILUMAB
     Indication: Dermatitis atopic
     Dosage: 300 MG, QOW
     Route: 058
  2. ERYTHROMYCIN [Concomitant]
     Active Substance: ERYTHROMYCIN
  3. AZASITE [Concomitant]
     Active Substance: AZITHROMYCIN MONOHYDRATE
  4. TACROLIMUS [Concomitant]
     Active Substance: TACROLIMUS
  5. BREYNA [Concomitant]
     Active Substance: BUDESONIDE\FORMOTEROL FUMARATE
  6. FLUTICASONE PROPIONATE [Concomitant]
     Active Substance: FLUTICASONE PROPIONATE

REACTIONS (4)
  - Eyelid exfoliation [Unknown]
  - Lip erythema [Unknown]
  - Rash [Unknown]
  - Oral herpes [Unknown]
